FAERS Safety Report 4528848-3 (Version None)
Quarter: 2004Q4

REPORT INFORMATION
  Report Type: 
  Country: None (occurrence: None)
  Receive Date: 20041214
  Receipt Date: 20041208
  Transmission Date: 20050328
  Serious: Yes (Hospitalization)
  Sender: FDA-Public Use
  Company Number: TOR 2004-0034

PATIENT
  Age: 54 Year
  Sex: Female

DRUGS (2)
  1. FARESTON [Suspect]
     Indication: BREAST CANCER
     Dosage: 40 MG ORAL
     Route: 048
     Dates: start: 20030922, end: 20041110
  2. MAGNESIUM OXIDE [Concomitant]

REACTIONS (2)
  - CERVIX DISORDER [None]
  - HYPERPLASIA [None]
